FAERS Safety Report 26164285 (Version 2)
Quarter: 2025Q4

REPORT INFORMATION
  Report Type: Spontaneous
  Country: US (occurrence: US)
  Receive Date: 20251216
  Receipt Date: 20251218
  Transmission Date: 20260118
  Serious: No
  Sender: SANOFI AVENTIS
  Company Number: US-SA-2025SA373310

PATIENT
  Age: 63 Year
  Sex: Male

DRUGS (6)
  1. SOLIQUA 100/33 [Suspect]
     Active Substance: INSULIN GLARGINE\LIXISENATIDE
     Indication: Blood glucose abnormal
     Dosage: 32 IU, QD
     Route: 058
  2. SOLIQUA 100/33 [Suspect]
     Active Substance: INSULIN GLARGINE\LIXISENATIDE
     Indication: Septic arthritis staphylococcal
     Dosage: 50 IU, QD
     Route: 065
  3. SOLIQUA 100/33 [Suspect]
     Active Substance: INSULIN GLARGINE\LIXISENATIDE
     Indication: Type IIa hyperlipidaemia
  4. ADMELOG [Suspect]
     Active Substance: INSULIN LISPRO
     Indication: Blood glucose abnormal
     Dosage: 15 U
     Route: 058
  5. ADMELOG [Suspect]
     Active Substance: INSULIN LISPRO
     Indication: Septic arthritis staphylococcal
     Dosage: 35 U, QD
     Route: 058
  6. ADMELOG [Suspect]
     Active Substance: INSULIN LISPRO
     Indication: Type IIa hyperlipidaemia

REACTIONS (1)
  - Off label use [Unknown]
